APPROVED DRUG PRODUCT: LEUCOVORIN CALCIUM PRESERVATIVE FREE
Active Ingredient: LEUCOVORIN CALCIUM
Strength: EQ 200MG BASE/VIAL
Dosage Form/Route: INJECTABLE;INJECTION
Application: A200753 | Product #003 | TE Code: AP
Applicant: SAGENT PHARMACEUTICALS INC
Approved: Sep 6, 2012 | RLD: No | RS: No | Type: RX